FAERS Safety Report 5502102-5 (Version None)
Quarter: 2007Q4

REPORT INFORMATION
  Report Type: 
  Country: None (occurrence: None)
  Receive Date: 20071030
  Receipt Date: 20071015
  Transmission Date: 20080405
  Serious: Yes (Other)
  Sender: FDA-Public Use
  Company Number: US-ROCHE-528170

PATIENT
  Sex: Male
  Weight: 3.4 kg

DRUGS (4)
  1. CLONAZEPAM [Suspect]
     Indication: DRUG USE FOR UNKNOWN INDICATION
  2. OLANZAPINE [Suspect]
     Indication: DRUG USE FOR UNKNOWN INDICATION
  3. PAROXETINE HCL [Suspect]
     Indication: DRUG USE FOR UNKNOWN INDICATION
  4. AMPICILLIN [Suspect]

REACTIONS (6)
  - BRAIN STEM SYNDROME [None]
  - DRUG WITHDRAWAL SYNDROME [None]
  - HYPONATRAEMIA [None]
  - METABOLIC ACIDOSIS [None]
  - PREGNANCY [None]
  - RESPIRATORY FAILURE [None]
